FAERS Safety Report 21128006 (Version 1)
Quarter: 2022Q3

REPORT INFORMATION
  Report Type: Spontaneous
  Country: US (occurrence: US)
  Receive Date: 20220725
  Receipt Date: 20220725
  Transmission Date: 20221027
  Serious: No
  Sender: FDA-Public Use
  Company Number: US-ABBVIE-22K-163-4426682-00

PATIENT
  Sex: Female
  Weight: 79 kg

DRUGS (2)
  1. SYNTHROID [Suspect]
     Active Substance: LEVOTHYROXINE SODIUM
     Indication: Product used for unknown indication
     Route: 048
  2. CYTOMEL [Suspect]
     Active Substance: LIOTHYRONINE SODIUM
     Indication: Hypothyroidism
     Dosage: 25 MG ONCE IN THE MORNING WITH SYNTHROID
     Route: 065

REACTIONS (3)
  - Alopecia [Unknown]
  - Anger [Unknown]
  - Drug ineffective [Unknown]
